FAERS Safety Report 9792607 (Version 1)
Quarter: 2014Q1

REPORT INFORMATION
  Report Type: Spontaneous
  Country: US (occurrence: US)
  Receive Date: 20140102
  Receipt Date: 20140102
  Transmission Date: 20141002
  Serious: No
  Sender: FDA-Public Use
  Company Number: US-TEVA-453337USA

PATIENT
  Sex: Female
  Weight: 67.65 kg

DRUGS (5)
  1. QVAR [Suspect]
     Indication: ASTHMA
  2. ATORVASTATIN [Concomitant]
     Indication: BLOOD CHOLESTEROL INCREASED
  3. LISINOPRIL [Concomitant]
     Indication: HYPERTENSION
  4. ALLERGY MEDICATION [Concomitant]
     Indication: HYPERSENSITIVITY
  5. PRO-AIR [Concomitant]
     Indication: ASTHMA

REACTIONS (1)
  - Cough [Unknown]
